FAERS Safety Report 17345331 (Version 1)
Quarter: 2020Q1

REPORT INFORMATION
  Report Type: Spontaneous
  Country: US (occurrence: US)
  Receive Date: 20200129
  Receipt Date: 20200129
  Transmission Date: 20200409
  Serious: No
  Sender: FDA-Public Use
  Company Number: US-ALLERGAN-1947859US

PATIENT
  Sex: Female

DRUGS (2)
  1. BOTOX [Suspect]
     Active Substance: ONABOTULINUMTOXINA
     Indication: PRODUCT USED FOR UNKNOWN INDICATION
     Dosage: 64 UNITS, SINGLE
     Dates: start: 20190614, end: 20190614
  2. JUVEDERM [Concomitant]
     Active Substance: HYALURONIC ACID
     Dosage: UNK, SINGLE
     Dates: start: 20190614, end: 20190614

REACTIONS (4)
  - Swelling face [Unknown]
  - Contusion [Unknown]
  - Drug ineffective [Unknown]
  - Facial pain [Unknown]

NARRATIVE: CASE EVENT DATE: 201906
